FAERS Safety Report 21803062 (Version 1)
Quarter: 2022Q4

REPORT INFORMATION
  Report Type: Report from Study
  Country: US (occurrence: US)
  Receive Date: 20221231
  Receipt Date: 20221231
  Transmission Date: 20230113
  Serious: No
  Sender: FDA-Public Use
  Company Number: US-ACORDA-ACO_173745_2022

PATIENT
  Sex: Male

DRUGS (13)
  1. INBRIJA [Suspect]
     Active Substance: LEVODOPA
     Indication: Parkinson^s disease
     Dosage: 2 DOSAGE FORM (CAPSULE), PRN (MAX OF 5 DOSES IN ONE DAY)
     Dates: start: 20220823
  2. INBRIJA [Suspect]
     Active Substance: LEVODOPA
     Indication: Therapeutic response shortened
  3. APOKYN [Concomitant]
     Active Substance: APOMORPHINE HYDROCHLORIDE
     Indication: Product used for unknown indication
     Dosage: 10MG/ML; Q 2 HRS
     Route: 065
  4. ASPIRIN [Concomitant]
     Active Substance: ASPIRIN
     Indication: Product used for unknown indication
     Dosage: 81 MILLIGRAM
     Route: 065
  5. CARBIDOPA\LEVODOPA [Concomitant]
     Active Substance: CARBIDOPA\LEVODOPA
     Indication: Product used for unknown indication
     Dosage: 50-200 MG
     Route: 065
  6. CARBIDOPA\LEVODOPA [Concomitant]
     Active Substance: CARBIDOPA\LEVODOPA
     Dosage: 25-100MG
     Route: 065
  7. CRESTOR [Concomitant]
     Active Substance: ROSUVASTATIN CALCIUM
     Indication: Product used for unknown indication
     Dosage: 10 MILLIGRAM
     Route: 065
  8. FLOMAX [Concomitant]
     Active Substance: TAMSULOSIN HYDROCHLORIDE
     Indication: Product used for unknown indication
     Dosage: 0.4 MILLIGRAM
     Route: 065
  9. GOCOVRI [Concomitant]
     Active Substance: AMANTADINE
     Indication: Product used for unknown indication
     Dosage: 137 MILLIGRAM
     Route: 065
  10. HYDROXYZINE HYDROCHLORIDE [Concomitant]
     Active Substance: HYDROXYZINE HYDROCHLORIDE
     Indication: Product used for unknown indication
     Dosage: 25 MILLIGRAM
     Route: 065
  11. KYNMOBI [Concomitant]
     Active Substance: APOMORPHINE HYDROCHLORIDE
     Indication: Product used for unknown indication
     Dosage: 15 MILLIGRAM
     Route: 065
  12. LOSARTAN POT HCTZ [Concomitant]
     Indication: Product used for unknown indication
     Dosage: 25 MILLIGRAM
     Route: 065
  13. QUETIAPINE [Concomitant]
     Active Substance: QUETIAPINE
     Indication: Product used for unknown indication
     Dosage: 25 MILLIGRAM
     Route: 065

REACTIONS (7)
  - Condition aggravated [Unknown]
  - On and off phenomenon [Unknown]
  - COVID-19 [Not Recovered/Not Resolved]
  - COVID-19 [Not Recovered/Not Resolved]
  - Unevaluable event [Not Recovered/Not Resolved]
  - Drug ineffective [Unknown]
  - Dyskinesia [Not Recovered/Not Resolved]
